FAERS Safety Report 5237127-0 (Version None)
Quarter: 2007Q1

REPORT INFORMATION
  Report Type: 
  Country: None (occurrence: None)
  Receive Date: 20070213
  Receipt Date: 20070205
  Transmission Date: 20070707
  Serious: Yes (Hospitalization)
  Sender: FDA-Public Use
  Company Number: US-GLAXOSMITHKLINE-A0638188A

PATIENT
  Age: 82 Year
  Sex: Male
  Weight: 89.1 kg

DRUGS (18)
  1. ROSIGLITAZONE [Suspect]
     Dosage: 4MG PER DAY
     Route: 048
     Dates: start: 20010326
  2. OMEPRAZOLE [Concomitant]
     Dosage: 20MG PER DAY
  3. TAMSULOSIN HCL [Concomitant]
     Dosage: .4MG PER DAY
  4. FINASTERIDE [Concomitant]
     Dosage: 5MG PER DAY
  5. FLUNISOLIDE [Concomitant]
  6. NITROGLYCERIN [Concomitant]
  7. QUININE SULFATE [Concomitant]
     Dosage: 260MG PER DAY
  8. LEVOTHYROXINE SODIUM [Concomitant]
     Dosage: .025MG PER DAY
  9. POTASSIUM CHLORIDE [Concomitant]
     Dosage: 8MEQ PER DAY
  10. LASIX [Concomitant]
     Dosage: 40MG TWICE PER DAY
  11. SIMVASTATIN [Concomitant]
     Dosage: 80MG PER DAY
  12. LEVALBUTEROL HCL [Concomitant]
  13. METOPROLOL TARTRATE [Concomitant]
     Dosage: 50MG TWICE PER DAY
  14. ASPIRIN [Concomitant]
     Dosage: 325MG PER DAY
  15. GABAPENTIN [Concomitant]
     Dosage: 900MG THREE TIMES PER DAY
  16. OXYCODONE + ACETAMINOPHEN [Concomitant]
  17. GLUCOSAMINE + CHONDROITIN [Concomitant]
  18. METAMUCIL [Concomitant]
     Dosage: 3TAB PER DAY

REACTIONS (7)
  - CARDIAC FAILURE CONGESTIVE [None]
  - COUGH [None]
  - DYSPNOEA [None]
  - HYPOXIA [None]
  - OEDEMA PERIPHERAL [None]
  - PITTING OEDEMA [None]
  - WAIST CIRCUMFERENCE INCREASED [None]
